FAERS Safety Report 10411141 (Version 2)
Quarter: 2015Q2

REPORT INFORMATION
  Report Type: Report from Study
  Country: None (occurrence: US)
  Receive Date: 20140826
  Receipt Date: 20150422
  Transmission Date: 20150821
  Serious: Yes (Hospitalization, Other)
  Sender: FDA-Public Use
  Company Number: US-GILEAD-2014-0113104

PATIENT
  Age: 12 Year
  Sex: Male

DRUGS (2)
  1. AMBRISENTAN [Suspect]
     Active Substance: AMBRISENTAN
     Indication: PULMONARY HYPERTENSION
     Dosage: 5 MG, UNK
     Dates: start: 20121218
  2. AMBRISENTAN [Suspect]
     Active Substance: AMBRISENTAN
     Indication: FIBRINOUS BRONCHITIS

REACTIONS (1)
  - Heart transplant [Unknown]
